FAERS Safety Report 20689640 (Version 1)
Quarter: 2022Q2

REPORT INFORMATION
  Report Type: Spontaneous
  Country: US (occurrence: None)
  Receive Date: 20220407
  Receipt Date: 20220407
  Transmission Date: 20220721
  Serious: No
  Sender: FDA-Public Use
  Company Number: None

PATIENT
  Age: 62 Year
  Sex: Male

DRUGS (2)
  1. TESTOSTERONE CYPIONATE [Suspect]
     Active Substance: TESTOSTERONE CYPIONATE
     Indication: Hormone replacement therapy
     Dosage: OTHER FREQUENCY : ONCE WEEKLY;?
     Route: 030
     Dates: start: 20210827
  2. Compounded sermorelin [Concomitant]
     Dates: start: 20211208

REACTIONS (6)
  - Injection site discomfort [None]
  - Product quality issue [None]
  - Injection site warmth [None]
  - Injection site swelling [None]
  - Injection site nodule [None]
  - Injection site bruising [None]

NARRATIVE: CASE EVENT DATE: 20220315
